FAERS Safety Report 5834460-6 (Version None)
Quarter: 2008Q3

REPORT INFORMATION
  Report Type: 
  Country: None (occurrence: None)
  Receive Date: 20080801
  Receipt Date: 20080716
  Transmission Date: 20090109
  Serious: Yes (Death)
  Sender: FDA-Public Use
  Company Number: 2008AL008328

PATIENT
  Age: 86 Year
  Sex: Male
  Weight: 67.586 kg

DRUGS (8)
  1. DIGOXIN [Suspect]
     Indication: ATRIAL FIBRILLATION
     Dosage: 0.125MG QOD POPO
     Route: 048
  2. WARFARIN SODIUM [Concomitant]
  3. IPRATROPIUM BROMIDE [Concomitant]
  4. ALBUTEROL SULFATE INH [Concomitant]
  5. COREG [Concomitant]
  6. GLIPIZIDE [Concomitant]
  7. ZEMPLAR [Concomitant]
  8. TUMS [Concomitant]

REACTIONS (7)
  - ARRHYTHMIA [None]
  - ASTHMA [None]
  - CONDITION AGGRAVATED [None]
  - DRUG INEFFECTIVE [None]
  - LOSS OF CONSCIOUSNESS [None]
  - LUNG DISORDER [None]
  - THERAPEUTIC AGENT TOXICITY [None]
